FAERS Safety Report 14329408 (Version 1)
Quarter: 2017Q4

REPORT INFORMATION
  Report Type: Spontaneous
  Country: PL (occurrence: PL)
  Receive Date: 20171227
  Receipt Date: 20171227
  Transmission Date: 20180321
  Serious: Yes (Other)
  Sender: FDA-Public Use
  Company Number: PL-TEVA-2017-PL-835067

PATIENT
  Sex: Male

DRUGS (2)
  1. THIOCODIN (CODEINE PHOSPHATE\SULFOGAIACOL) [Suspect]
     Active Substance: CODEINE PHOSPHATE\SULFOGAIACOL
  2. DIMENHYDRINATE. [Suspect]
     Active Substance: DIMENHYDRINATE
     Route: 065

REACTIONS (2)
  - Pruritus [None]
  - Drug abuse [Unknown]
